FAERS Safety Report 10753323 (Version 1)
Quarter: 2015Q1

REPORT INFORMATION
  Report Type: Spontaneous
  Country: US (occurrence: US)
  Receive Date: 20150130
  Receipt Date: 20150130
  Transmission Date: 20150721
  Serious: Yes (Other)
  Sender: FDA-Public Use
  Company Number: CHPA2015US001271

PATIENT
  Sex: Female

DRUGS (1)
  1. VOLTAREN [Suspect]
     Active Substance: DICLOFENAC SODIUM
     Indication: PRODUCT USED FOR UNKNOWN INDICATION
     Dosage: UNK
     Route: 061

REACTIONS (4)
  - Aortic arteriosclerosis [Not Recovered/Not Resolved]
  - Wrong technique in drug usage process [Unknown]
  - Application site pain [Not Recovered/Not Resolved]
  - Drug administered at inappropriate site [Unknown]
